FAERS Safety Report 22157451 (Version 1)
Quarter: 2023Q1

REPORT INFORMATION
  Report Type: Spontaneous
  Country: ES (occurrence: ES)
  Receive Date: 20230330
  Receipt Date: 20230330
  Transmission Date: 20230417
  Serious: Yes (Other)
  Sender: FDA-Public Use
  Company Number: ES-JNJFOC-20230229394

PATIENT
  Sex: Male
  Weight: 60 kg

DRUGS (4)
  1. DEXAMETHASONE [Suspect]
     Active Substance: DEXAMETHASONE
     Indication: Plasma cell myeloma
     Dosage: 7 CYCLES
     Route: 065
     Dates: start: 201801, end: 201807
  2. VELCADE [Suspect]
     Active Substance: BORTEZOMIB
     Indication: Plasma cell myeloma
     Dosage: 7 CYCLES BIWEEKLY SINCE 16/01/2018 (WEEKLY FROM 3RD CYCLE AND W/O CYCLOPHOSPHAMIDE FROM 4TH CYCLE)
     Route: 065
     Dates: start: 20180116, end: 201807
  3. CYCLOPHOSPHAMIDE [Suspect]
     Active Substance: CYCLOPHOSPHAMIDE
     Indication: Plasma cell myeloma
     Dosage: 7 CYCLES
     Route: 065
     Dates: start: 201801, end: 201807
  4. ZOMETA [Concomitant]
     Active Substance: ZOLEDRONIC ACID
     Indication: Plasma cell myeloma
     Dates: start: 20180206

REACTIONS (2)
  - Hepatotoxicity [Unknown]
  - Intentional product use issue [Unknown]
